FAERS Safety Report 8317646-0 (Version None)
Quarter: 2012Q2

REPORT INFORMATION
  Report Type: 
  Country: None (occurrence: None)
  Receive Date: 20120427
  Receipt Date: 20090624
  Transmission Date: 20120825
  Serious: No
  Sender: FDA-Public Use
  Company Number: US-TEVA-2009007621

PATIENT
  Sex: Female
  Weight: 66.284 kg

DRUGS (5)
  1. HUMALOG [Concomitant]
     Dates: start: 19950101
  2. SYNTHROID [Concomitant]
     Dosage: .15 MILLIGRAM;
     Dates: start: 19890101
  3. NUVIGIL [Suspect]
     Indication: FIBROMYALGIA
     Dosage: 250 MILLIGRAM;
     Route: 048
     Dates: start: 20090608, end: 20090611
  4. NUVIGIL [Suspect]
     Indication: HYPERSOMNIA
  5. CYMBALTA [Concomitant]
     Dosage: 120 MILLIGRAM;
     Dates: start: 20050101

REACTIONS (4)
  - FEELING JITTERY [None]
  - MIGRAINE [None]
  - DIZZINESS [None]
  - ABDOMINAL DISCOMFORT [None]
